FAERS Safety Report 5280080-4 (Version None)
Quarter: 2007Q1

REPORT INFORMATION
  Report Type: 
  Country: None (occurrence: None)
  Receive Date: 20070329
  Receipt Date: 20070316
  Transmission Date: 20070707
  Serious: Yes (Death, Other)
  Sender: FDA-Public Use
  Company Number: UA-BAYER-200711351GDS

PATIENT
  Age: 16 Year
  Sex: Female

DRUGS (6)
  1. ACETYLSALICYLIC ACID SRT [Suspect]
     Indication: RESPIRATORY TRACT INFECTION VIRAL
     Route: 065
     Dates: start: 20070101
  2. GRIPEX (PARACETAMOLUM) [Concomitant]
     Indication: RESPIRATORY TRACT INFECTION VIRAL
     Route: 065
     Dates: start: 20070101
  3. AMPIOXUM (AMPICILLINUM+OXACILLINUM) [Concomitant]
     Indication: RESPIRATORY TRACT INFECTION VIRAL
     Route: 065
     Dates: start: 20070104
  4. AMIZONUM (ANALGETIC) [Concomitant]
     Indication: RESPIRATORY TRACT INFECTION VIRAL
     Route: 065
     Dates: start: 20070104
  5. ASCORUTINUM (AC.ASCORBINICUM+RUTOSIDIUM) [Concomitant]
     Indication: RESPIRATORY TRACT INFECTION VIRAL
     Route: 065
     Dates: start: 20070104
  6. AMBROXOLUM [Concomitant]
     Indication: RESPIRATORY TRACT INFECTION VIRAL
     Route: 065
     Dates: start: 20070104

REACTIONS (4)
  - COLITIS [None]
  - GASTRITIS [None]
  - MULTI-ORGAN FAILURE [None]
  - REYE'S SYNDROME [None]
